FAERS Safety Report 9980369 (Version 1)
Quarter: 2014Q1

REPORT INFORMATION
  Report Type: Spontaneous
  Country: US (occurrence: None)
  Receive Date: 20140305
  Receipt Date: 20140305
  Transmission Date: 20141002
  Serious: No
  Sender: FDA-Public Use
  Company Number: None

PATIENT
  Age: 65 Year
  Sex: Female

DRUGS (3)
  1. VELCADE [Suspect]
     Indication: PLASMA CELL MYELOMA
     Dates: start: 200905, end: 200907
  2. DOXIL [Suspect]
     Indication: PLASMA CELL MYELOMA
     Dates: start: 200905, end: 200907
  3. DEXAMETHASONE [Concomitant]

REACTIONS (4)
  - Neuropathy peripheral [None]
  - Hypoaesthesia [None]
  - Walking aid user [None]
  - Herpes zoster [None]
